FAERS Safety Report 5851640-4 (Version None)
Quarter: 2008Q3

REPORT INFORMATION
  Report Type: 
  Country: None (occurrence: None)
  Receive Date: 20080820
  Receipt Date: 20080811
  Transmission Date: 20090109
  Serious: Yes (Other)
  Sender: FDA-Public Use
  Company Number: AR-ELI_LILLY_AND_COMPANY-AR200808000046

PATIENT
  Sex: Female
  Weight: 65 kg

DRUGS (5)
  1. BYETTA [Suspect]
     Indication: TYPE 2 DIABETES MELLITUS
     Dosage: 10 UG, UNKNOWN
     Route: 058
     Dates: start: 20071101
  2. BYETTA [Suspect]
     Dosage: 10 UG, 2/D
     Route: 058
     Dates: start: 20071201, end: 20071201
  3. AMARYL [Concomitant]
     Indication: TYPE 2 DIABETES MELLITUS
     Dosage: 4 MG, DAILY (1/D)
     Route: 048
     Dates: start: 20071001
  4. LEVOTHYROXINE SODIUM [Concomitant]
     Dosage: 50 UG, DAILY (1/D)
  5. METFORMIN HCL [Concomitant]
     Indication: TYPE 2 DIABETES MELLITUS
     Dates: start: 20070101, end: 20070101

REACTIONS (5)
  - ABDOMINAL PAIN [None]
  - BLOOD GLUCOSE INCREASED [None]
  - FATIGUE [None]
  - HYPOGLYCAEMIA [None]
  - STOMACH DISCOMFORT [None]
